FAERS Safety Report 5902164-7 (Version None)
Quarter: 2008Q3

REPORT INFORMATION
  Report Type: 
  Country: None (occurrence: None)
  Receive Date: 20080929
  Receipt Date: 20080917
  Transmission Date: 20090109
  Serious: Yes (Other)
  Sender: FDA-Public Use
  Company Number: GB-PFIZER INC-2008079318

PATIENT

DRUGS (2)
  1. GABAPENTIN [Suspect]
     Indication: NEURALGIA
  2. ARIPIPRAZOLE [Interacting]
     Indication: SCHIZOPHRENIA

REACTIONS (3)
  - DIARRHOEA [None]
  - DRUG INTERACTION [None]
  - PSYCHOTIC DISORDER [None]
